FAERS Safety Report 20495287 (Version 6)
Quarter: 2024Q3

REPORT INFORMATION
  Report Type: Spontaneous
  Country: US (occurrence: US)
  Receive Date: 20220221
  Receipt Date: 20240822
  Transmission Date: 20241016
  Serious: Yes (Other)
  Sender: PFIZER
  Company Number: US-PFIZER INC-202200229476

PATIENT
  Age: 74 Year
  Sex: Female

DRUGS (1)
  1. XELJANZ XR [Suspect]
     Active Substance: TOFACITINIB CITRATE
     Indication: Arthropathy
     Dosage: 11 MG, 1X/DAY
     Route: 048

REACTIONS (9)
  - Renal impairment [Unknown]
  - Mixed connective tissue disease [Unknown]
  - Fatigue [Unknown]
  - Alopecia [Unknown]
  - Herpes zoster [Unknown]
  - Dizziness [Not Recovered/Not Resolved]
  - Oral mucosal blistering [Unknown]
  - Hypoaesthesia oral [Not Recovered/Not Resolved]
  - Off label use [Unknown]

NARRATIVE: CASE EVENT DATE: 20200101
